FAERS Safety Report 8944381 (Version 1)
Quarter: 2012Q4

REPORT INFORMATION
  Report Type: 
  Country: US (occurrence: US)
  Receive Date: 20121204
  Receipt Date: 20121204
  Transmission Date: 20130627
  Serious: Yes (Other)
  Sender: FDA-Public Use
  Company Number: US-AMGEN-USASP2012067023

PATIENT
  Age: 36 Year
  Sex: Female

DRUGS (1)
  1. ENBREL [Suspect]
     Indication: RHEUMATOID ARTHRITIS
     Dosage: 50 mg, qwk
     Dates: start: 20100120

REACTIONS (6)
  - Herpes zoster [Recovered/Resolved]
  - Inflammation [Recovered/Resolved]
  - Endodontic procedure [Recovered/Resolved]
  - Tooth repair [Recovered/Resolved]
  - Artificial crown procedure [Recovered/Resolved]
  - Sinusitis [Recovered/Resolved]
